FAERS Safety Report 14737955 (Version 1)
Quarter: 2018Q2

REPORT INFORMATION
  Report Type: Spontaneous
  Country: GB (occurrence: GB)
  Receive Date: 20180409
  Receipt Date: 20180409
  Transmission Date: 20180711
  Serious: Yes (Disabling)
  Sender: FDA-Public Use
  Company Number: GB-TEVA-2018-GB-880167

PATIENT
  Age: 77 Year
  Sex: Female
  Weight: 87 kg

DRUGS (12)
  1. LATANOPROST. [Concomitant]
     Active Substance: LATANOPROST
     Dosage: 1 GTT DAILY; EVERY EVENING
     Dates: start: 20160831, end: 20170920
  2. ADCAL [Concomitant]
     Active Substance: CALCIUM CARBONATE
     Dosage: 4 DOSAGE FORMS DAILY;
     Dates: start: 20160601
  3. AZATHIOPRINE. [Concomitant]
     Active Substance: AZATHIOPRINE
     Dosage: 25 MILLIGRAM DAILY; BY GASTROENTEROLOGY. ( CURRENTLY ONE DAILY)
     Dates: start: 20171018
  4. SALOFALK [Concomitant]
     Active Substance: MESALAMINE
     Dosage: 1 DOSAGE FORMS DAILY; AT NIGHT
     Dates: start: 20161230
  5. RANITIDINE. [Concomitant]
     Active Substance: RANITIDINE
     Dosage: 1 DOSAGE FORMS DAILY; AT NIGHT FOR GASTROPROTECTION WHILST O...
     Dates: start: 20160601
  6. TIMOLOL. [Concomitant]
     Active Substance: TIMOLOL
     Dosage: 1 GTT DAILY; BOTH EYES
     Dates: start: 20170920
  7. PREDNISOLONE. [Concomitant]
     Active Substance: PREDNISOLONE
     Dates: start: 20160907
  8. MEZAVANT XL [Concomitant]
     Active Substance: MESALAMINE
     Dosage: 4 DOSAGE FORMS DAILY;
     Dates: start: 20161230, end: 20171018
  9. ALLOPURINOL. [Suspect]
     Active Substance: ALLOPURINOL
     Dates: start: 20171015
  10. PREDNISOLONE. [Concomitant]
     Active Substance: PREDNISOLONE
     Dosage: 30 MILLIGRAM DAILY; 30MG DAILY FOR 1 WEEK THEN REDUCE TOBY 5MG EACH...
     Dates: start: 20160831
  11. MESALAZINE [Concomitant]
     Active Substance: MESALAMINE
     Dosage: 1 DOSAGE FORMS DAILY; USE AS DIRECTED ONE AT NIGHT
     Dates: start: 20160601, end: 20171018
  12. PARACETAMOL [Concomitant]
     Active Substance: ACETAMINOPHEN
     Dosage: 8 DOSAGE FORMS DAILY; TAKE TWO 4 TIMES/DAY. SUPPLY CAPLETS
     Dates: start: 20160505

REACTIONS (4)
  - Feeling cold [Unknown]
  - Diarrhoea [Unknown]
  - Vomiting [Unknown]
  - Chills [Recovered/Resolved]

NARRATIVE: CASE EVENT DATE: 20171106
